FAERS Safety Report 7331412-4 (Version None)
Quarter: 2011Q1

REPORT INFORMATION
  Report Type: 
  Country: None (occurrence: None)
  Receive Date: 20110228
  Receipt Date: 20110228
  Transmission Date: 20110831
  Serious: No
  Sender: FDA-Public Use
  Company Number: None

PATIENT
  Age: 71 Year
  Sex: Male
  Weight: 97.5234 kg

DRUGS (1)
  1. VIAGRA [Suspect]
     Dosage: ONE TIME ONLY
     Dates: start: 20100617, end: 20100617

REACTIONS (2)
  - HYPOAESTHESIA [None]
  - HEART RATE IRREGULAR [None]
